FAERS Safety Report 23729498 (Version 1)
Quarter: 2024Q2

REPORT INFORMATION
  Report Type: Spontaneous
  Country: US (occurrence: US)
  Receive Date: 20240410
  Receipt Date: 20240410
  Transmission Date: 20240716
  Serious: No
  Sender: FDA-Public Use
  Company Number: US-BEH-2024170424

PATIENT
  Sex: Female

DRUGS (4)
  1. KCENTRA [Suspect]
     Active Substance: COAGULATION FACTOR IX HUMAN\COAGULATION FACTOR VII HUMAN\COAGULATION FACTOR X HUMAN\PROTEIN C\PROTEI
     Dosage: UNK
     Route: 065
     Dates: start: 202403
  2. KCENTRA [Suspect]
     Active Substance: COAGULATION FACTOR IX HUMAN\COAGULATION FACTOR VII HUMAN\COAGULATION FACTOR X HUMAN\PROTEIN C\PROTEI
     Dosage: UNK
     Route: 065
     Dates: start: 202403
  3. BRILINTA [Concomitant]
     Active Substance: TICAGRELOR
     Indication: Stent placement
     Dosage: UNK
     Dates: start: 2024, end: 20240318
  4. ELIQUIS [Concomitant]
     Active Substance: APIXABAN
     Indication: Stent placement
     Dosage: UNK
     Dates: start: 2024, end: 20240318

REACTIONS (1)
  - Factor Xa activity increased [Unknown]
